FAERS Safety Report 8601362-1 (Version None)
Quarter: 2012Q3

REPORT INFORMATION
  Report Type: 
  Country: None (occurrence: None)
  Receive Date: 20120817
  Receipt Date: 20120807
  Transmission Date: 20120928
  Serious: Yes (Hospitalization, Other)
  Sender: FDA-Public Use
  Company Number: CA-BRISTOL-MYERS SQUIBB COMPANY-15178023

PATIENT
  Age: 50 Year
  Sex: Female

DRUGS (10)
  1. METHOTREXATE [Concomitant]
  2. MICARDIS [Concomitant]
  3. ORENCIA [Suspect]
     Indication: RHEUMATOID ARTHRITIS
     Dosage: LAST DOSE:13DEC10,03OCT11,23MAY12;1L66305;SEP14,22JN12 NO OF INF:43 1L66305,EXP:SE2014,INTP:18JL12
     Route: 042
     Dates: start: 20090402
  4. PREDNISONE TAB [Concomitant]
  5. CELEBREX [Concomitant]
  6. SINGULAIR [Concomitant]
  7. ACETAMINOPHEN [Concomitant]
  8. MAXALT [Concomitant]
  9. ENBREL [Concomitant]
  10. NEXIUM [Concomitant]

REACTIONS (5)
  - SYNCOPE [None]
  - CHEST PAIN [None]
  - ASTHMA [None]
  - BRONCHITIS [None]
  - ABSCESS [None]
